FAERS Safety Report 6806631-3 (Version None)
Quarter: 2010Q2

REPORT INFORMATION
  Report Type: 
  Country: None (occurrence: None)
  Receive Date: 20100629
  Receipt Date: 20080421
  Transmission Date: 20101027
  Serious: Yes (Hospitalization, Disabling, Other)
  Sender: FDA-Public Use
  Company Number: US-PFIZER INC-2008034877

PATIENT
  Sex: Female

DRUGS (1)
  1. BEXTRA [Suspect]
     Dates: start: 20030117

REACTIONS (1)
  - MYOCARDIAL INFARCTION [None]
